FAERS Safety Report 14631886 (Version 2)
Quarter: 2018Q2

REPORT INFORMATION
  Report Type: Spontaneous
  Country: JP (occurrence: JP)
  Receive Date: 20180313
  Receipt Date: 20180409
  Transmission Date: 20180711
  Serious: Yes (Death, Other)
  Sender: FDA-Public Use
  Company Number: JP-BAYER-2018-043621

PATIENT
  Sex: Female

DRUGS (1)
  1. STIVARGA [Suspect]
     Active Substance: REGORAFENIB
     Indication: GASTROINTESTINAL STROMAL TUMOUR
     Dosage: UNK
     Route: 048
     Dates: start: 20180122

REACTIONS (4)
  - Gastrointestinal stromal tumour [None]
  - Hepatic encephalopathy [Fatal]
  - Rash [None]
  - Loss of consciousness [Fatal]

NARRATIVE: CASE EVENT DATE: 2018
